FAERS Safety Report 24373912 (Version 1)
Quarter: 2024Q3

REPORT INFORMATION
  Report Type: Spontaneous
  Country: US (occurrence: US)
  Receive Date: 20240927
  Receipt Date: 20240927
  Transmission Date: 20241017
  Serious: No
  Sender: VIVUS
  Company Number: US-VIVUS LLC-2024V1000176

PATIENT
  Sex: Female

DRUGS (1)
  1. QSYMIA [Suspect]
     Active Substance: PHENTERMINE HYDROCHLORIDE\TOPIRAMATE
     Indication: Product used for unknown indication
     Dosage: EVERY DAY X 2-3 WEEKS, THEN EVERY OTHER DAY X 1 WEEK
     Route: 048

REACTIONS (3)
  - Personality change [Unknown]
  - Fall [Unknown]
  - Inappropriate schedule of product administration [Unknown]
